FAERS Safety Report 24726251 (Version 1)
Quarter: 2024Q4

REPORT INFORMATION
  Report Type: Spontaneous
  Country: PL (occurrence: PL)
  Receive Date: 20241212
  Receipt Date: 20241212
  Transmission Date: 20250115
  Serious: Yes (Other)
  Sender: MYLAN
  Company Number: PL-MYLANLABS-2024M1110184

PATIENT
  Sex: Male

DRUGS (4)
  1. LEVETIRACETAM [Suspect]
     Active Substance: LEVETIRACETAM
     Indication: Seizure
     Dosage: UNK
     Route: 065
  2. PHENOBARBITAL [Concomitant]
     Active Substance: PHENOBARBITAL
     Indication: Seizure
     Dosage: UNK
     Route: 065
  3. PYRIDOXINE [Concomitant]
     Active Substance: PYRIDOXINE
     Indication: Seizure
     Dosage: 200 MILLIGRAM
     Route: 042
  4. PYRIDOXINE [Concomitant]
     Active Substance: PYRIDOXINE
     Indication: Seizure
     Dosage: 30 MILLIGRAM/KILOGRAM, QD
     Route: 048

REACTIONS (1)
  - Laboratory test abnormal [Unknown]
